FAERS Safety Report 7426043-1 (Version None)
Quarter: 2011Q2

REPORT INFORMATION
  Report Type: 
  Country: None (occurrence: None)
  Receive Date: 20110420
  Receipt Date: 20110405
  Transmission Date: 20111010
  Serious: Yes (Other)
  Sender: FDA-Public Use
  Company Number: ES-JNJFOC-20110403972

PATIENT
  Sex: Male

DRUGS (1)
  1. STELARA [Suspect]
     Indication: DERMATITIS ATOPIC
     Route: 058

REACTIONS (2)
  - HERPES OPHTHALMIC [None]
  - OFF LABEL USE [None]
